FAERS Safety Report 4724374-7 (Version None)
Quarter: 2005Q3

REPORT INFORMATION
  Report Type: 
  Country: None (occurrence: None)
  Receive Date: 20050722
  Receipt Date: 20050722
  Transmission Date: 20060218
  Serious: Yes (Death)
  Sender: FDA-Public Use
  Company Number: None

PATIENT
  Age: 36 Year
  Sex: Male
  Weight: 81.6475 kg

DRUGS (2)
  1. CLOZARIL [Suspect]
     Indication: SCHIZOPHRENIA
     Dosage: WEEKLY ONCE PER WEEK
  2. CLOZARIL [Suspect]
     Indication: SUICIDAL IDEATION
     Dosage: WEEKLY ONCE PER WEEK

REACTIONS (1)
  - DRUG TOXICITY [None]
